FAERS Safety Report 15723046 (Version 4)
Quarter: 2019Q1

REPORT INFORMATION
  Report Type: Report from Study
  Country: ZA (occurrence: ZA)
  Receive Date: 20181214
  Receipt Date: 20190314
  Transmission Date: 20190417
  Serious: Yes (Life-Threatening, Hospitalization)
  Sender: FDA-Public Use
  Company Number: ZA-SAKK-2018SA333786AA

PATIENT
  Age: 79 Year
  Sex: Female

DRUGS (6)
  1. TOUJEO [Suspect]
     Active Substance: INSULIN GLARGINE
     Dosage: 40 U, QD
     Dates: start: 20181120
  2. HUMALOG [Concomitant]
     Active Substance: INSULIN LISPRO
     Dosage: UNK
     Dates: start: 2008
  3. HUMALOG [Concomitant]
     Active Substance: INSULIN LISPRO
     Dosage: BEFORE SUPPER- 14 U, QD
     Dates: start: 20181120
  4. ADCO-SIMVASTATIN [Concomitant]
     Active Substance: SIMVASTATIN
     Dosage: 10 MG, QD
     Dates: start: 20081120
  5. INSULIN GLARGINE [Suspect]
     Active Substance: INSULIN GLARGINE
     Dosage: UNK
     Dates: start: 2008, end: 20181120
  6. TOUJEO [Suspect]
     Active Substance: INSULIN GLARGINE
     Dosage: 8 U, HS
     Dates: start: 20181128

REACTIONS (9)
  - Blood glucose increased [Not Recovered/Not Resolved]
  - Cerebrovascular accident [Recovered/Resolved]
  - Neuropathy peripheral [Not Recovered/Not Resolved]
  - Nephropathy [Not Recovered/Not Resolved]
  - Syncope [Recovered/Resolved]
  - Hip fracture [Not Recovered/Not Resolved]
  - Fall [Unknown]
  - Limb discomfort [Not Recovered/Not Resolved]
  - Retinopathy [Not Recovered/Not Resolved]

NARRATIVE: CASE EVENT DATE: 20180401
